FAERS Safety Report 7054466-1 (Version None)
Quarter: 2010Q4

REPORT INFORMATION
  Report Type: 
  Country: None (occurrence: None)
  Receive Date: 20101015
  Receipt Date: 20101007
  Transmission Date: 20110411
  Serious: Yes (Other)
  Sender: FDA-Public Use
  Company Number: 2010MA003446

PATIENT
  Age: 32 Year
  Sex: Female

DRUGS (4)
  1. METFORMIN HCL [Suspect]
     Indication: DIABETES MELLITUS
     Dosage: 500 MG; PO
     Route: 048
     Dates: start: 20100916, end: 20100919
  2. LEVOTHYROXINE [Concomitant]
  3. SODIUM [Concomitant]
  4. CO-CODAMOL [Concomitant]

REACTIONS (1)
  - LIP SWELLING [None]
